FAERS Safety Report 5908812-X (Version None)
Quarter: 2008Q4

REPORT INFORMATION
  Report Type: 
  Country: None (occurrence: None)
  Receive Date: 20081006
  Receipt Date: 20080925
  Transmission Date: 20090506
  Serious: Yes (Other)
  Sender: FDA-Public Use
  Company Number: JP-AVENTIS-200813022JP

PATIENT
  Age: 60 Year
  Sex: Female

DRUGS (2)
  1. AMARYL [Suspect]
     Route: 048
  2. SEIBULE [Concomitant]
     Route: 048

REACTIONS (1)
  - DEPRESSED LEVEL OF CONSCIOUSNESS [None]
